FAERS Safety Report 5483280-3 (Version None)
Quarter: 2007Q4

REPORT INFORMATION
  Report Type: 
  Country: None (occurrence: None)
  Receive Date: 20071012
  Receipt Date: 20071004
  Transmission Date: 20080405
  Serious: Yes (Other)
  Sender: FDA-Public Use
  Company Number: PHBS2007IT16658

PATIENT
  Age: 70 Year
  Sex: Male

DRUGS (1)
  1. IMATINIB [Suspect]
     Indication: CHRONIC MYELOID LEUKAEMIA
     Dosage: 400 MG/D
     Route: 065

REACTIONS (4)
  - ARRHYTHMIA [None]
  - EJECTION FRACTION DECREASED [None]
  - PERIORBITAL OEDEMA [None]
  - WEIGHT INCREASED [None]
